FAERS Safety Report 6433294-1 (Version None)
Quarter: 2009Q4

REPORT INFORMATION
  Report Type: 
  Country: None (occurrence: None)
  Receive Date: 20091109
  Receipt Date: 20091028
  Transmission Date: 20100525
  Serious: Yes (Other)
  Sender: FDA-Public Use
  Company Number: US-JNJCH-2009028845

PATIENT
  Age: 54 Year
  Sex: Female
  Weight: 90.7 kg

DRUGS (2)
  1. NEOSPORIN PLUS PAIN RELIEF MAXIMUM STRENGTH [Suspect]
     Indication: WOUND TREATMENT
     Dosage: TEXT:^LESS THAN A DIME SIZE^ ONCE
     Route: 061
     Dates: start: 20091025, end: 20091026
  2. ATENOLOL [Concomitant]
     Indication: HYPERTENSION
     Dosage: TEXT:50MG 1X DAILY
     Route: 048

REACTIONS (5)
  - FEELING HOT [None]
  - HYPERSENSITIVITY [None]
  - PAIN [None]
  - SWELLING [None]
  - URTICARIA [None]
